FAERS Safety Report 20548466 (Version 1)
Quarter: 2022Q1

REPORT INFORMATION
  Report Type: Spontaneous
  Country: US (occurrence: US)
  Receive Date: 20220303
  Receipt Date: 20220303
  Transmission Date: 20220424
  Serious: No
  Sender: FDA-Public Use
  Company Number: US-PFIZER INC-2021587014

PATIENT
  Age: 24 Year
  Sex: Female
  Weight: 54.43 kg

DRUGS (4)
  1. EFFEXOR XR [Suspect]
     Active Substance: VENLAFAXINE HYDROCHLORIDE
     Indication: Premenstrual dysphoric disorder
     Dosage: 37.5 MG, 1X/DAY
     Route: 048
     Dates: start: 202008, end: 20210112
  2. VENLAFAXINE [Suspect]
     Active Substance: VENLAFAXINE HYDROCHLORIDE
     Indication: Premenstrual dysphoric disorder
     Dosage: 75 MG, 1X/DAY
     Route: 048
     Dates: start: 20210113
  3. ADDERALL [Concomitant]
     Active Substance: AMPHETAMINE ASPARTATE\AMPHETAMINE SULFATE\DEXTROAMPHETAMINE SACCHARATE\DEXTROAMPHETAMINE SULFATE
     Indication: Attention deficit hyperactivity disorder
     Dosage: 20 MG, 1X/DAY
     Dates: start: 20210120
  4. LORYNA [Concomitant]
     Active Substance: DROSPIRENONE\ETHINYL ESTRADIOL
     Indication: Contraception
     Dosage: 28 DAY CYCLE
     Dates: start: 20200828

REACTIONS (3)
  - Anxiety [Recovering/Resolving]
  - Electric shock sensation [Recovering/Resolving]
  - Off label use [Unknown]

NARRATIVE: CASE EVENT DATE: 20200801
